FAERS Safety Report 5867546-0 (Version None)
Quarter: 2008Q3

REPORT INFORMATION
  Report Type: 
  Country: None (occurrence: None)
  Receive Date: 20080902
  Receipt Date: 20080826
  Transmission Date: 20090109
  Serious: No
  Sender: FDA-Public Use
  Company Number: DE-EISAI MEDICAL RESEARCH-E2090-00534-SPO-DE

PATIENT
  Sex: Female
  Weight: 100 kg

DRUGS (2)
  1. ZONEGRAN [Suspect]
     Indication: EPILEPSY
     Route: 048
     Dates: start: 20080823, end: 20080826
  2. VALPROIC ACID [Concomitant]
     Indication: EPILEPSY
     Route: 048
     Dates: start: 20070101

REACTIONS (1)
  - HYPERSENSITIVITY [None]
